FAERS Safety Report 10373953 (Version 1)
Quarter: 2014Q1

REPORT INFORMATION
  Report Type: Spontaneous
  Country: US (occurrence: None)
  Receive Date: 20140306
  Receipt Date: 20140306
  Transmission Date: 20141002
  Serious: Yes (Other)
  Sender: FDA-Public Use
  Company Number: 163-21880-13014487

PATIENT
  Age: 57 Year
  Sex: Male
  Weight: 122 kg

DRUGS (4)
  1. REVLIMID (LENALIDOMIDE) (25 MILLIGRAM, CAPSULES) [Suspect]
     Indication: PLASMA CELL MYELOMA
     Route: 048
     Dates: start: 20121025, end: 20130116
  2. DEXAMETHASONE (DEXAMETHASONE) [Suspect]
     Indication: PRODUCT USED FOR UNKNOWN INDICATION
     Dosage: 1 IN 1 WK
     Dates: end: 20130125
  3. FUROSEMIDE (FUROSEMIDE) [Concomitant]
  4. CLONIDINE (CLONIDINE) [Concomitant]

REACTIONS (5)
  - Anaemia [None]
  - Renal impairment [None]
  - Hypovolaemia [None]
  - Hyperglycaemia [None]
  - Asthenia [None]
